FAERS Safety Report 14182093 (Version 1)
Quarter: 2017Q4

REPORT INFORMATION
  Report Type: Spontaneous
  Country: US (occurrence: US)
  Receive Date: 20171113
  Receipt Date: 20171113
  Transmission Date: 20180321
  Serious: Yes (Other)
  Sender: FDA-Public Use
  Company Number: US-TEVA-825618ACC

PATIENT
  Sex: Female

DRUGS (1)
  1. PARAGARD T 380A [Suspect]
     Active Substance: COPPER
     Indication: CONTRACEPTION
     Dates: start: 20150211, end: 20171109

REACTIONS (3)
  - Device breakage [Unknown]
  - Pelvic discomfort [Unknown]
  - Device dislocation [Recovered/Resolved]

NARRATIVE: CASE EVENT DATE: 20171103
